FAERS Safety Report 9775737 (Version 1)
Quarter: 2013Q4

REPORT INFORMATION
  Report Type: Spontaneous
  Country: FR (occurrence: FR)
  Receive Date: 20131220
  Receipt Date: 20131220
  Transmission Date: 20140711
  Serious: Yes (Hospitalization)
  Sender: FDA-Public Use
  Company Number: FR-BRISTOL-MYERS SQUIBB COMPANY-19914480

PATIENT
  Age: 50 Year
  Sex: Female

DRUGS (3)
  1. VIDEX [Suspect]
     Route: 048
     Dates: start: 2003, end: 20130429
  2. TRUVADA [Concomitant]
  3. ISENTRESS [Concomitant]

REACTIONS (2)
  - Venoocclusive liver disease [Unknown]
  - Splenomegaly [Unknown]
